FAERS Safety Report 4692003-7 (Version None)
Quarter: 2005Q2

REPORT INFORMATION
  Report Type: 
  Country: None (occurrence: None)
  Receive Date: 20050616
  Receipt Date: 20050616
  Transmission Date: 20051028
  Serious: Yes (Other)
  Sender: FDA-Public Use
  Company Number: None

PATIENT
  Age: 57 Year
  Sex: Female
  Weight: 79.3795 kg

DRUGS (1)
  1. SEROQUEL [Suspect]
     Dosage: 1000 MG   DAY

REACTIONS (1)
  - DRUG PRESCRIBING ERROR [None]
